FAERS Safety Report 6347810-1 (Version None)
Quarter: 2009Q3

REPORT INFORMATION
  Report Type: 
  Country: None (occurrence: None)
  Receive Date: 20090910
  Receipt Date: 20090831
  Transmission Date: 20100115
  Serious: Yes (Disabling)
  Sender: FDA-Public Use
  Company Number: B0575072A

PATIENT
  Sex: Male
  Weight: 53 kg

DRUGS (7)
  1. ARIXTRA [Suspect]
     Indication: THROMBOSIS PROPHYLAXIS
     Dosage: 1.5MG PER DAY
     Route: 058
     Dates: start: 20090509, end: 20090515
  2. DICHLOTRIDE [Concomitant]
     Indication: HYPERTENSION
     Dosage: 50MG PER DAY
     Route: 048
  3. ACECOL [Concomitant]
     Indication: HYPERTENSION
     Dosage: 2MG PER DAY
     Route: 048
  4. ADALAT [Concomitant]
     Indication: HYPERTENSION
     Dosage: 40MG PER DAY
     Route: 048
  5. LOXONIN [Concomitant]
     Indication: ANALGESIA
     Dosage: 180MG PER DAY
     Route: 048
     Dates: start: 20090504, end: 20090512
  6. MUCOSTA [Concomitant]
     Indication: GASTRIC ULCER
     Route: 048
     Dates: start: 20090504, end: 20090512
  7. HYPEN [Concomitant]
     Indication: ANALGESIA
     Route: 048
     Dates: start: 20090513, end: 20090517

REACTIONS (5)
  - BLADDER DISORDER [None]
  - GASTROINTESTINAL DISORDER [None]
  - MOTOR DYSFUNCTION [None]
  - PARALYSIS [None]
  - SUBARACHNOID HAEMORRHAGE [None]
